FAERS Safety Report 17996196 (Version 1)
Quarter: 2020Q3

REPORT INFORMATION
  Report Type: Spontaneous
  Country: US (occurrence: US)
  Receive Date: 20200708
  Receipt Date: 20200708
  Transmission Date: 20201103
  Serious: No
  Sender: FDA-Public Use
  Company Number: US-UPSHER-SMITH LABORATORIES, LLC-2019USL00990

PATIENT
  Age: 72 Year
  Sex: Male
  Weight: 74.83 kg

DRUGS (3)
  1. TESTOSTERONE. [Suspect]
     Active Substance: TESTOSTERONE
     Indication: HYPOGONADISM
     Dosage: 31.25 MG, 1X/DAY IN THE MORNING
     Route: 061
  2. TESTOSTERONE. [Suspect]
     Active Substance: TESTOSTERONE
     Dosage: 25 MG, 1X/DAY IN THE MORNING
     Route: 061
  3. TESTOSTERONE. [Suspect]
     Active Substance: TESTOSTERONE
     Dosage: 37.5 MG, 1X/DAY IN THE MORNING
     Route: 061

REACTIONS (2)
  - Blood testosterone decreased [Recovered/Resolved]
  - Blood testosterone increased [Not Recovered/Not Resolved]

NARRATIVE: CASE EVENT DATE: 20170525
